FAERS Safety Report 12507375 (Version 1)
Quarter: 2016Q2

REPORT INFORMATION
  Report Type: Spontaneous
  Country: US (occurrence: None)
  Receive Date: 20160628
  Receipt Date: 20160628
  Transmission Date: 20160815
  Serious: Yes (Hospitalization)
  Sender: FDA-Public Use
  Company Number: None

PATIENT
  Age: 76 Year
  Sex: Male
  Weight: 74.3 kg

DRUGS (3)
  1. 5-FLUOROURACIL (5-FU) [Suspect]
     Active Substance: FLUOROURACIL
     Dates: end: 20160411
  2. OXALIPLATIN (FLOXATIN) [Concomitant]
     Dates: end: 20160411
  3. LEUCOVORIN CALCIUM. [Suspect]
     Active Substance: LEUCOVORIN CALCIUM
     Dates: end: 20160411

REACTIONS (8)
  - Multiple organ dysfunction syndrome [None]
  - Post procedural complication [None]
  - Abdominal sepsis [None]
  - Hypoxia [None]
  - Intestinal obstruction [None]
  - Cardiac arrest [None]
  - Pneumatosis intestinalis [None]
  - Aspiration [None]

NARRATIVE: CASE EVENT DATE: 20160614
